FAERS Safety Report 4398954-5 (Version None)
Quarter: 2004Q3

REPORT INFORMATION
  Report Type: 
  Country: None (occurrence: None)
  Receive Date: 20040715
  Receipt Date: 20040617
  Transmission Date: 20050211
  Serious: Yes (Other)
  Sender: FDA-Public Use
  Company Number: JP-MERCK-0406USA01776

PATIENT
  Age: 1 Year
  Sex: Female
  Weight: 10 kg

DRUGS (8)
  1. AMOXICILLIN [Suspect]
     Indication: OTITIS EXTERNA
     Route: 048
     Dates: start: 20040525, end: 20040527
  2. AMOXICILLIN [Suspect]
     Route: 048
     Dates: start: 20040527, end: 20040531
  3. MUCODYNE [Suspect]
     Indication: OTITIS EXTERNA
     Route: 048
     Dates: start: 20040125, end: 20040127
  4. MUCODYNE [Suspect]
     Route: 048
     Dates: start: 20040527, end: 20040528
  5. PERIACTIN [Suspect]
     Indication: OTITIS EXTERNA
     Route: 048
     Dates: start: 20040527, end: 20040528
  6. PERIACTIN [Suspect]
     Route: 048
     Dates: start: 20040125, end: 20040127
  7. PERIACTIN [Suspect]
     Indication: UPPER RESPIRATORY TRACT INFECTION
     Route: 048
     Dates: start: 20040527, end: 20040528
  8. PERIACTIN [Suspect]
     Route: 048
     Dates: start: 20040125, end: 20040127

REACTIONS (1)
  - FEBRILE CONVULSION [None]
